FAERS Safety Report 25555239 (Version 1)
Quarter: 2025Q3

REPORT INFORMATION
  Report Type: Spontaneous
  Country: US (occurrence: US)
  Receive Date: 20250715
  Receipt Date: 20250715
  Transmission Date: 20251021
  Serious: No
  Sender: ELI LILLY AND COMPANY
  Company Number: US-ELI_LILLY_AND_COMPANY-US202507013027

PATIENT
  Age: 62 Year
  Sex: Female

DRUGS (3)
  1. BASAGLAR [Suspect]
     Active Substance: INSULIN GLARGINE
     Indication: Product used for unknown indication
     Route: 065
  2. BASAGLAR [Suspect]
     Active Substance: INSULIN GLARGINE
     Route: 065
     Dates: start: 20250712
  3. NOVOLOG [Concomitant]
     Active Substance: INSULIN ASPART
     Indication: Product used for unknown indication

REACTIONS (3)
  - Blood glucose decreased [Recovering/Resolving]
  - Blood glucose increased [Recovering/Resolving]
  - Drug ineffective [Recovering/Resolving]
